FAERS Safety Report 9893509 (Version 3)
Quarter: 2014Q1

REPORT INFORMATION
  Report Type: Report from Study
  Country: DE (occurrence: DE)
  Receive Date: 20140213
  Receipt Date: 20140213
  Transmission Date: 20141002
  Serious: Yes (Hospitalization, Other)
  Sender: FDA-Public Use
  Company Number: PHHY2013DE122029

PATIENT
  Sex: Female

DRUGS (3)
  1. EXTAVIA [Suspect]
     Indication: MULTIPLE SCLEROSIS
     Dosage: UNK UKN, UNK
     Route: 058
     Dates: start: 20130814, end: 20131025
  2. EXTAVIA [Suspect]
     Dosage: 125 UG, QOD
     Route: 058
     Dates: end: 20140118
  3. EXTAVIA [Suspect]
     Dosage: 125 UG, QOD
     Route: 058
     Dates: start: 20140204

REACTIONS (6)
  - Gastroenteritis [Recovering/Resolving]
  - Dehydration [Recovering/Resolving]
  - Weight decreased [Recovering/Resolving]
  - Abdominal pain upper [Unknown]
  - Myalgia [Not Recovered/Not Resolved]
  - Nausea [Unknown]
